FAERS Safety Report 5594724-0 (Version None)
Quarter: 2008Q1

REPORT INFORMATION
  Report Type: 
  Country: None (occurrence: None)
  Receive Date: 20080117
  Receipt Date: 20080111
  Transmission Date: 20080703
  Serious: Yes (Death, Hospitalization)
  Sender: FDA-Public Use
  Company Number: US-GENENTECH-250958

PATIENT
  Age: 24 Year
  Sex: Female

DRUGS (4)
  1. RITUXAN [Suspect]
     Indication: NEUROMYELITIS OPTICA
     Dosage: 500 MG, UNK
     Route: 042
     Dates: start: 20070822
  2. RITUXAN [Suspect]
     Dosage: 100 MG, UNK
  3. BACLOFEN [Concomitant]
     Indication: MUSCLE SPASTICITY
     Dosage: 5 MG, BID
  4. NEURONTIN [Concomitant]
     Indication: NEURALGIA
     Dosage: 100 MG, TID

REACTIONS (1)
  - DEATH [None]
